FAERS Safety Report 20010978 (Version 2)
Quarter: 2021Q4

REPORT INFORMATION
  Report Type: Spontaneous
  Country: None (occurrence: US)
  Receive Date: 20211028
  Receipt Date: 20211203
  Transmission Date: 20220303
  Serious: Yes (Other)
  Sender: FDA-Public Use
  Company Number: US-BAXTER HEALTHCARE-2121126

PATIENT
  Sex: Female

DRUGS (2)
  1. ARTISS FIBRIN SEALANT [Suspect]
     Active Substance: FIBRINOGEN HUMAN\THROMBIN HUMAN
     Indication: Neck lift
     Dates: start: 20210809
  2. ARTISS [Suspect]
     Active Substance: FIBRINOGEN HUMAN\THROMBIN HUMAN

REACTIONS (6)
  - Seroma [Not Recovered/Not Resolved]
  - Infection [Unknown]
  - Abscess [Unknown]
  - Swelling [Not Recovered/Not Resolved]
  - Erythema induratum [Unknown]
  - Fibrosis [None]

NARRATIVE: CASE EVENT DATE: 20210811
